FAERS Safety Report 24116177 (Version 1)
Quarter: 2024Q3

REPORT INFORMATION
  Report Type: Spontaneous
  Country: US (occurrence: US)
  Receive Date: 20240722
  Receipt Date: 20240722
  Transmission Date: 20241017
  Serious: Yes (Other)
  Sender: ENDO
  Company Number: US-ENDO USA, INC.-2024-002910

PATIENT

DRUGS (3)
  1. VANTAS [Suspect]
     Active Substance: HISTRELIN ACETATE
     Indication: Product used for unknown indication
     Dosage: UNK UNKNOWN, UNKNOWN
     Route: 058
  2. VANTAS [Suspect]
     Active Substance: HISTRELIN ACETATE
     Indication: Product used for unknown indication
     Dosage: UNK UNKNOWN, UNKNOWN
     Route: 058
  3. VANTAS [Suspect]
     Active Substance: HISTRELIN ACETATE
     Indication: Product used for unknown indication
     Dosage: UNK UNKNOWN, UNKNOWN
     Route: 058

REACTIONS (1)
  - Fracture [Unknown]
